FAERS Safety Report 9170011 (Version 1)
Quarter: 2013Q1

REPORT INFORMATION
  Report Type: Spontaneous
  Country: US (occurrence: None)
  Receive Date: 20130314
  Receipt Date: 20130314
  Transmission Date: 20140127
  Serious: Yes (Hospitalization)
  Sender: FDA-Public Use
  Company Number: None

PATIENT
  Age: 67 Year
  Sex: Female
  Weight: 48 kg

DRUGS (5)
  1. OXYCODONE/ACETAMINOPHEN [Suspect]
     Indication: SUICIDE ATTEMPT
     Dosage: OVERDOSE ONCE PO?PRIOR TO ADMISSION
     Route: 048
  2. LORAZEPAM [Concomitant]
  3. ESOMEPRAZOLE [Concomitant]
  4. ALLOPURINOL [Concomitant]
  5. LISINOPRIL/HCTZ [Concomitant]

REACTIONS (4)
  - Suicide attempt [None]
  - Intentional overdose [None]
  - Depressed level of consciousness [None]
  - Overdose [None]
